FAERS Safety Report 6110288-7 (Version None)
Quarter: 2009Q1

REPORT INFORMATION
  Report Type: 
  Country: None (occurrence: None)
  Receive Date: 20090310
  Receipt Date: 20090302
  Transmission Date: 20090719
  Serious: Yes (Hospitalization, Other)
  Sender: FDA-Public Use
  Company Number: JP-ASTRAZENECA-2009AP00795

PATIENT
  Age: 30390 Day
  Sex: Female
  Weight: 50 kg

DRUGS (10)
  1. ARIMIDEX [Suspect]
     Indication: BREAST CANCER
     Route: 048
     Dates: start: 20081208, end: 20081224
  2. LOXOT [Suspect]
     Indication: PAIN
     Route: 048
  3. PREDNISOLONE [Concomitant]
     Indication: PURPURA
     Route: 048
     Dates: start: 20090109, end: 20090124
  4. ADALAT [Concomitant]
     Indication: HYPERTENSION
     Route: 048
  5. ENALAPRIL MALEATE [Concomitant]
     Indication: HYPERTENSION
     Dosage: DOSE UNKNOWN
     Route: 048
  6. CYSTAMET [Concomitant]
     Indication: GASTRITIS
     Dosage: DOSE UNKNOWN
     Route: 048
  7. CARBAMAZEPINE [Concomitant]
     Indication: TRIGEMINAL NEURALGIA
     Route: 048
  8. AMNEZON [Concomitant]
     Indication: INSOMNIA
     Route: 048
  9. PARULEON [Concomitant]
     Indication: INSOMNIA
     Route: 048
  10. PIMURO [Concomitant]
     Indication: CONSTIPATION
     Route: 048

REACTIONS (6)
  - ANAEMIA [None]
  - CHEST PAIN [None]
  - HAEMATOMA [None]
  - HAEMORRHAGE SUBCUTANEOUS [None]
  - HYPOTENSION [None]
  - PURPURA [None]
